FAERS Safety Report 15149469 (Version 1)
Quarter: 2018Q3

REPORT INFORMATION
  Report Type: Spontaneous
  Country: US (occurrence: US)
  Receive Date: 20180716
  Receipt Date: 20180716
  Transmission Date: 20181010
  Serious: No
  Sender: FDA-Public Use
  Company Number: US-BAYER-2018-134190

PATIENT
  Sex: Female

DRUGS (1)
  1. GADAVIST [Suspect]
     Active Substance: GADOBUTROL

REACTIONS (2)
  - Syringe issue [Unknown]
  - Occupational exposure to product [Unknown]

NARRATIVE: CASE EVENT DATE: 20180626
